FAERS Safety Report 8095685-5 (Version None)
Quarter: 2012Q1

REPORT INFORMATION
  Report Type: 
  Country: None (occurrence: None)
  Receive Date: 20120129
  Receipt Date: 20111214
  Transmission Date: 20120608
  Serious: Yes (Other)
  Sender: FDA-Public Use
  Company Number: US-ABBOTT-11P-163-0883930-00

PATIENT
  Age: 61 Year
  Sex: Female
  Weight: 84.898 kg

DRUGS (14)
  1. SINGULAIR [Concomitant]
     Indication: PRODUCT USED FOR UNKNOWN INDICATION
     Dosage: AT BEDTIME
  2. OLUX E [Concomitant]
     Indication: PSORIASIS
  3. PRAMOSONE [Concomitant]
     Indication: PSORIASIS
     Dosage: 1-2.5%
     Route: 061
  4. SYNTHROID [Concomitant]
     Indication: HYPOTHYROIDISM
  5. ZYRTEC [Concomitant]
     Indication: HYPERSENSITIVITY
     Dosage: AT BEDTIME
  6. HUMIRA [Suspect]
     Indication: RHEUMATOID ARTHRITIS
     Route: 058
     Dates: start: 20100610
  7. HUMIRA [Suspect]
     Indication: PSORIATIC ARTHROPATHY
     Route: 058
     Dates: start: 20110801
  8. VOLTAREN [Concomitant]
     Indication: ARTHRALGIA
     Dosage: GEL AS REQUIRED
  9. ZOCOR [Concomitant]
     Indication: BLOOD CHOLESTEROL INCREASED
  10. LOTREL [Concomitant]
     Indication: HYPERTENSION
     Dosage: 5/20MG
  11. NEXIUM [Concomitant]
     Indication: GASTROOESOPHAGEAL REFLUX DISEASE
  12. REMICADE [Suspect]
     Indication: PSORIATIC ARTHROPATHY
  13. LOVAZA [Concomitant]
     Indication: VITAMIN SUPPLEMENTATION
  14. REMICADE [Suspect]
     Indication: RHEUMATOID ARTHRITIS
     Dates: start: 20100101, end: 20110729

REACTIONS (4)
  - PANCYTOPENIA [None]
  - DRUG INEFFECTIVE [None]
  - PSORIASIS [None]
  - STOMATITIS [None]
